FAERS Safety Report 11806165 (Version 1)
Quarter: 2015Q4

REPORT INFORMATION
  Report Type: Spontaneous
  Country: US (occurrence: US)
  Receive Date: 20151207
  Receipt Date: 20151207
  Transmission Date: 20160305
  Serious: No
  Sender: FDA-Public Use
  Company Number: US-HOSPIRA-2847307

PATIENT
  Age: 69 Year
  Sex: Male

DRUGS (1)
  1. DOBUTAMINE HYDROCHLORIDE. [Suspect]
     Active Substance: DOBUTAMINE HYDROCHLORIDE
     Indication: PRODUCT USED FOR UNKNOWN INDICATION
     Dosage: VIA SMART PUMP
     Route: 050
     Dates: start: 20150405

REACTIONS (5)
  - Underdose [Recovered/Resolved]
  - No adverse event [None]
  - Product label confusion [Recovered/Resolved]
  - Product label issue [Recovered/Resolved]
  - Circumstance or information capable of leading to medication error [Recovered/Resolved]

NARRATIVE: CASE EVENT DATE: 20150405
